FAERS Safety Report 23430804 (Version 1)
Quarter: 2024Q1

REPORT INFORMATION
  Report Type: Report from Study
  Country: US (occurrence: US)
  Receive Date: 20240123
  Receipt Date: 20240123
  Transmission Date: 20240410
  Serious: Yes (Other)
  Sender: FDA-Public Use
  Company Number: US-UCBSA-2024002588

PATIENT
  Age: 50 Year
  Sex: Female

DRUGS (1)
  1. LEVETIRACETAM [Suspect]
     Active Substance: LEVETIRACETAM
     Indication: Seizure
     Dosage: 1000MG - 1T BID

REACTIONS (2)
  - Intestinal obstruction [Unknown]
  - Bowel obstruction surgery [Unknown]

NARRATIVE: CASE EVENT DATE: 20240110
